FAERS Safety Report 24720506 (Version 1)
Quarter: 2024Q4

REPORT INFORMATION
  Report Type: Other
  Country: CN (occurrence: CN)
  Receive Date: 20241211
  Receipt Date: 20241211
  Transmission Date: 20250115
  Serious: Yes (Hospitalization)
  Sender: ANI
  Company Number: CN-ANIPHARMA-013131

PATIENT
  Age: 47 Year
  Sex: Female

DRUGS (8)
  1. CYCLOPHOSPHAMIDE [Suspect]
     Active Substance: CYCLOPHOSPHAMIDE
     Indication: B-cell type acute leukaemia
  2. IDARUBICIN [Concomitant]
     Active Substance: IDARUBICIN
     Indication: B-cell type acute leukaemia
  3. VINCRISTINE [Concomitant]
     Active Substance: VINCRISTINE
     Indication: B-cell type acute leukaemia
  4. DEXAMETHASONE [Concomitant]
     Active Substance: DEXAMETHASONE
     Indication: B-cell type acute leukaemia
  5. CYTARABINE [Concomitant]
     Active Substance: CYTARABINE
     Indication: Radiotherapy
  6. ACLARUBICIN [Concomitant]
     Active Substance: ACLARUBICIN
     Indication: Radiotherapy
  7. METHOTREXATE [Concomitant]
     Active Substance: METHOTREXATE
     Indication: Radiotherapy
  8. PEGASPARGASE [Concomitant]
     Active Substance: PEGASPARGASE
     Indication: Radiotherapy

REACTIONS (1)
  - Disease progression [Unknown]
